FAERS Safety Report 7491237-6 (Version None)
Quarter: 2011Q2

REPORT INFORMATION
  Report Type: 
  Country: None (occurrence: None)
  Receive Date: 20110519
  Receipt Date: 20110511
  Transmission Date: 20111010
  Serious: Yes (Death)
  Sender: FDA-Public Use
  Company Number: A0808091A

PATIENT
  Age: 74 Year
  Sex: Female
  Weight: 70.9 kg

DRUGS (9)
  1. COZAAR [Concomitant]
  2. HYDROCHLOROTHIAZIDE [Concomitant]
  3. TRAZODONE HCL [Concomitant]
  4. VERPAMIL HCL [Concomitant]
  5. VYTORIN [Concomitant]
  6. GLYBURIDE [Concomitant]
  7. NEURONTIN [Concomitant]
  8. CYMBALTA [Concomitant]
  9. AVANDIA [Suspect]
     Indication: TYPE 2 DIABETES MELLITUS
     Dosage: 4MG TWICE PER DAY
     Route: 048
     Dates: start: 20040811, end: 20081201

REACTIONS (2)
  - MYOCARDIAL ISCHAEMIA [None]
  - SUPRAVENTRICULAR TACHYCARDIA [None]
